FAERS Safety Report 5669682-0 (Version None)
Quarter: 2008Q1

REPORT INFORMATION
  Report Type: 
  Country: None (occurrence: None)
  Receive Date: 20080317
  Receipt Date: 20080305
  Transmission Date: 20080703
  Serious: Yes (Death)
  Sender: FDA-Public Use
  Company Number: JP-WYE-H03096708

PATIENT
  Age: 40 Year
  Sex: Female

DRUGS (1)
  1. AMIODARONE HCL [Suspect]
     Indication: VENTRICULAR TACHYCARDIA
     Dosage: 150 ML SOLUTION (DOSE AND REGIMEN UNSPECIFIED)
     Route: 042

REACTIONS (1)
  - DEATH [None]
